FAERS Safety Report 22048982 (Version 2)
Quarter: 2023Q1

REPORT INFORMATION
  Report Type: Spontaneous
  Country: US (occurrence: US)
  Receive Date: 20230301
  Receipt Date: 20230307
  Transmission Date: 20230418
  Serious: No
  Sender: FDA-Public Use
  Company Number: US-PFIZER INC-202300085587

PATIENT
  Age: 83 Year
  Sex: Female
  Weight: 131.54 kg

DRUGS (8)
  1. PAXLOVID [Suspect]
     Active Substance: NIRMATRELVIR\RITONAVIR
     Indication: COVID-19 treatment
     Dosage: ONE PACK MORNING AND EVENING; FOR FIVE DAYS
     Route: 048
     Dates: start: 20230222, end: 20230227
  2. ELIQUIS [Suspect]
     Active Substance: APIXABAN
     Indication: Atrial fibrillation
     Dosage: UNK UNK, 2X/DAY
  3. ELIQUIS [Suspect]
     Active Substance: APIXABAN
     Dosage: 25 MG, 1X/DAY
  4. PREDNISONE [Concomitant]
     Active Substance: PREDNISONE
  5. FERROUS SULFATE [Concomitant]
     Active Substance: FERROUS SULFATE
  6. CHOLECALCIFEROL [Concomitant]
     Active Substance: CHOLECALCIFEROL
     Dosage: UNK
  7. ALPHANINE [FACTOR IX COMPLEX HUMAN] [Concomitant]
  8. IRON [Concomitant]
     Active Substance: IRON

REACTIONS (2)
  - Epistaxis [Recovering/Resolving]
  - Off label use [Unknown]

NARRATIVE: CASE EVENT DATE: 20230227
